FAERS Safety Report 4783504-1 (Version None)
Quarter: 2005Q3

REPORT INFORMATION
  Report Type: 
  Country: None (occurrence: None)
  Receive Date: 20050914
  Receipt Date: 20050706
  Transmission Date: 20060218
  Serious: Yes (Other)
  Sender: FDA-Public Use
  Company Number: 163-20785-05070059

PATIENT
  Sex: Male

DRUGS (10)
  1. THALIDOMIDE OR PLACEBO (THALIDOMIDE) [Suspect]
     Indication: PROSTATIC INTRAEPITHELIAL NEOPLASIA
     Dosage: SEE IMAGE
     Route: 048
     Dates: start: 20021007
  2. THALIDOMIDE OR PLACEBO (THALIDOMIDE) [Suspect]
     Indication: PROSTATIC INTRAEPITHELIAL NEOPLASIA
     Dosage: SEE IMAGE
     Route: 048
     Dates: start: 20030912
  3. THALIDOMIDE OR PLACEBO (THALIDOMIDE) [Suspect]
     Indication: PROSTATIC INTRAEPITHELIAL NEOPLASIA
     Dosage: SEE IMAGE
     Route: 048
     Dates: start: 20040524
  4. .... [Suspect]
  5. LEUPROLIDE (L) [Suspect]
     Indication: PROSTATIC INTRAEPITHELIAL NEOPLASIA
     Dosage: SEE IMAGE
     Route: 030
     Dates: start: 20021007
  6. LEUPROLIDE (L) [Suspect]
     Indication: PROSTATIC INTRAEPITHELIAL NEOPLASIA
     Dosage: SEE IMAGE
     Route: 030
     Dates: start: 20030912
  7. LEUPROLIDE (L) [Suspect]
     Indication: PROSTATIC INTRAEPITHELIAL NEOPLASIA
     Dosage: SEE IMAGE
     Route: 030
     Dates: start: 20040324
  8. GOSERELIN (G) [Suspect]
     Indication: PROSTATIC INTRAEPITHELIAL NEOPLASIA
     Dosage: SEE IMAGE
     Route: 058
     Dates: start: 20021007
  9. GOSERELIN (G) [Suspect]
     Indication: PROSTATIC INTRAEPITHELIAL NEOPLASIA
     Dosage: SEE IMAGE
     Route: 058
     Dates: start: 20030912
  10. GOSERELIN (G) [Suspect]
     Indication: PROSTATIC INTRAEPITHELIAL NEOPLASIA
     Dosage: SEE IMAGE
     Route: 058
     Dates: start: 20040524

REACTIONS (1)
  - ERECTILE DYSFUNCTION [None]
